FAERS Safety Report 5823988-0 (Version None)
Quarter: 2008Q3

REPORT INFORMATION
  Report Type: 
  Country: None (occurrence: None)
  Receive Date: 20080728
  Receipt Date: 20080723
  Transmission Date: 20090109
  Serious: No
  Sender: FDA-Public Use
  Company Number: BR-ELI_LILLY_AND_COMPANY-BR200807002461

PATIENT
  Age: 60 Year
  Sex: Male

DRUGS (3)
  1. ZYPREXA [Suspect]
     Indication: SCHIZOPHRENIA
     Dosage: 10 MG, DAILY (1/D)
     Route: 048
     Dates: start: 20050101
  2. AMPLICTIL [Concomitant]
     Dosage: UNK, UNKNOWN
     Route: 065
  3. CHLORDIAZEPOXIDE [Concomitant]
     Indication: ANXIETY
     Dosage: UNK, UNKNOWN
     Route: 065

REACTIONS (1)
  - PLATELET COUNT DECREASED [None]
